FAERS Safety Report 10163746 (Version 2)
Quarter: 2014Q3

REPORT INFORMATION
  Report Type: Report from Study
  Country: US (occurrence: US)
  Receive Date: 20140509
  Receipt Date: 20140709
  Transmission Date: 20150326
  Serious: Yes (Other)
  Sender: FDA-Public Use
  Company Number: US-EXELIXIS-XL18414004264

PATIENT
  Age: 73 Year
  Sex: Female
  Weight: 50.6 kg

DRUGS (18)
  1. AMLODIPINE [Concomitant]
     Active Substance: AMLODIPINE BESYLATE
  2. VITAMIN B12 [Concomitant]
     Active Substance: CYANOCOBALAMIN
  3. LOPERAMIDE HCL [Concomitant]
     Active Substance: LOPERAMIDE HYDROCHLORIDE
  4. OMEPRAZOLE. [Concomitant]
     Active Substance: OMEPRAZOLE
  5. PREDNISONE. [Concomitant]
     Active Substance: PREDNISONE
  6. VITAMIN C [Concomitant]
     Active Substance: ASCORBIC ACID
  7. CALCIUM CITRATE WITH VITAMIN D [Concomitant]
     Active Substance: CALCIUM CITRATE\VITAMIN D
  8. MULTIVITAMIN [Concomitant]
     Active Substance: VITAMINS
  9. ASPIRIN. [Concomitant]
     Active Substance: ASPIRIN
  10. PERPHENAZINE. [Concomitant]
     Active Substance: PERPHENAZINE
  11. XL184 [Suspect]
     Active Substance: CABOZANTINIB
     Indication: METASTATIC BRONCHIAL CARCINOMA
     Dosage: 60 MG, QD
     Route: 048
     Dates: start: 20131217, end: 20140504
  12. XL184 [Suspect]
     Active Substance: CABOZANTINIB
     Dosage: 60 MG, QD
     Route: 048
     Dates: start: 20140513
  13. CETIRIZINE [Concomitant]
     Active Substance: CETIRIZINE HYDROCHLORIDE
  14. FISH OIL [Concomitant]
     Active Substance: FISH OIL
  15. ONDANSETRON HCL [Concomitant]
     Active Substance: ONDANSETRON HYDROCHLORIDE
  16. SYMBICORT [Concomitant]
     Active Substance: BUDESONIDE\FORMOTEROL FUMARATE DIHYDRATE
  17. CLONAZEPAM. [Concomitant]
     Active Substance: CLONAZEPAM
  18. MAGNESIUM SULFATE [Concomitant]
     Active Substance: MAGNESIUM SULFATE

REACTIONS (2)
  - Hypertension [Unknown]
  - Aphasia [Recovered/Resolved]

NARRATIVE: CASE EVENT DATE: 20140504
